FAERS Safety Report 16924134 (Version 1)
Quarter: 2019Q4

REPORT INFORMATION
  Report Type: Spontaneous
  Country: FR (occurrence: FR)
  Receive Date: 20191016
  Receipt Date: 20191016
  Transmission Date: 20200122
  Serious: Yes (Hospitalization)
  Sender: FDA-Public Use
  Company Number: FR-ZYDUS-042013

PATIENT
  Age: 53 Year
  Sex: Female
  Weight: 100 kg

DRUGS (5)
  1. PROZAC [Suspect]
     Active Substance: FLUOXETINE HYDROCHLORIDE
     Indication: INTENTIONAL OVERDOSE
     Route: 048
     Dates: start: 20190731, end: 20190731
  2. TRAMADOL. [Suspect]
     Active Substance: TRAMADOL
     Indication: INTENTIONAL OVERDOSE
     Dosage: 2 PADS
     Route: 048
     Dates: start: 20190731, end: 20190731
  3. ALPRAZOLAM. [Suspect]
     Active Substance: ALPRAZOLAM
     Indication: INTENTIONAL OVERDOSE
     Route: 048
     Dates: start: 20190731, end: 20190731
  4. DEPAMIDE [Suspect]
     Active Substance: VALPROMIDE
     Indication: INTENTIONAL OVERDOSE
     Dosage: 2 PADS
     Route: 048
     Dates: start: 20190731, end: 20190731
  5. LORAZEPAM. [Suspect]
     Active Substance: LORAZEPAM
     Indication: INTENTIONAL OVERDOSE
     Dosage: IN TOTAL
     Route: 048
     Dates: start: 20190731, end: 20190731

REACTIONS (2)
  - Poisoning deliberate [Recovered/Resolved]
  - Confusional state [Recovered/Resolved]

NARRATIVE: CASE EVENT DATE: 20190731
